FAERS Safety Report 7563198-2 (Version None)
Quarter: 2011Q2

REPORT INFORMATION
  Report Type: 
  Country: None (occurrence: None)
  Receive Date: 20110622
  Receipt Date: 20110614
  Transmission Date: 20111010
  Serious: Yes (Other)
  Sender: FDA-Public Use
  Company Number: US-NAPPMUNDI-USA-2011-0063564

PATIENT
  Age: 29 Year
  Sex: Male

DRUGS (2)
  1. OXYCONTIN [Suspect]
     Indication: PRODUCT USED FOR UNKNOWN INDICATION
  2. COCAINE [Suspect]
     Indication: DRUG ABUSE

REACTIONS (3)
  - PHYSICAL ASSAULT [None]
  - SUBSTANCE ABUSE [None]
  - INTENTIONAL DRUG MISUSE [None]
